FAERS Safety Report 6239865-X (Version None)
Quarter: 2009Q2

REPORT INFORMATION
  Report Type: 
  Country: None (occurrence: None)
  Receive Date: 20090619
  Receipt Date: 20090608
  Transmission Date: 20091009
  Serious: Yes (Life-Threatening, Hospitalization)
  Sender: FDA-Public Use
  Company Number: 235262K09USA

PATIENT
  Age: 42 Year
  Sex: Female

DRUGS (11)
  1. REBIF [Suspect]
     Indication: MULTIPLE SCLEROSIS
     Dosage: 22 MCG, 3 IN 1 WEEKS, SUBCUTANEOUS; 44 MCG, 3 IN 1 WEEKS, SUBCUTANEOUS; 22 MCG, 3 IN 1 WEEKS, SUBCUT
     Route: 058
     Dates: start: 20090101, end: 20090101
  2. REBIF [Suspect]
     Indication: MULTIPLE SCLEROSIS
     Dosage: 22 MCG, 3 IN 1 WEEKS, SUBCUTANEOUS; 44 MCG, 3 IN 1 WEEKS, SUBCUTANEOUS; 22 MCG, 3 IN 1 WEEKS, SUBCUT
     Route: 058
     Dates: start: 20090406, end: 20090101
  3. REBIF [Suspect]
     Indication: MULTIPLE SCLEROSIS
     Dosage: 22 MCG, 3 IN 1 WEEKS, SUBCUTANEOUS; 44 MCG, 3 IN 1 WEEKS, SUBCUTANEOUS; 22 MCG, 3 IN 1 WEEKS, SUBCUT
     Route: 058
     Dates: start: 20090101, end: 20090401
  4. CORTISONE ACETATE [Suspect]
     Indication: INTERVERTEBRAL DISC PROTRUSION
     Dates: start: 20090427, end: 20090427
  5. ZOCOR [Concomitant]
  6. TOPAMAX [Concomitant]
  7. CYMBALTA [Concomitant]
  8. LEVOXYL [Concomitant]
  9. LORTAB    ( VICODIN) [Concomitant]
  10. MORPHINE [Concomitant]
  11. PROVIGIL [Concomitant]

REACTIONS (8)
  - CARDIAC ARREST [None]
  - CEREBRAL HAEMORRHAGE TRAUMATIC [None]
  - CEREBRAL THROMBOSIS [None]
  - FALL [None]
  - LOSS OF CONSCIOUSNESS [None]
  - MYOCARDIAL INFARCTION [None]
  - RESPIRATORY ARREST [None]
  - TRAUMATIC BRAIN INJURY [None]
